APPROVED DRUG PRODUCT: NANDROLONE DECANOATE
Active Ingredient: NANDROLONE DECANOATE
Strength: 200MG/ML
Dosage Form/Route: INJECTABLE;INJECTION
Application: A088128 | Product #001
Applicant: WATSON LABORATORIES INC
Approved: Dec 5, 1983 | RLD: Yes | RS: No | Type: DISCN